FAERS Safety Report 18264413 (Version 1)
Quarter: 2020Q3

REPORT INFORMATION
  Report Type: Spontaneous
  Country: JP (occurrence: JP)
  Receive Date: 20200914
  Receipt Date: 20200914
  Transmission Date: 20201103
  Serious: Yes (Hospitalization, Other)
  Sender: FDA-Public Use
  Company Number: JP-BRISTOL-MYERS SQUIBB COMPANY-BMS-2020-074444

PATIENT
  Age: 67 Year
  Sex: Male

DRUGS (1)
  1. NIVOLUMAB [Suspect]
     Active Substance: NIVOLUMAB
     Indication: GASTRIC CANCER STAGE IV
     Dosage: 240 MILLIGRAM
     Route: 065

REACTIONS (3)
  - Adrenal disorder [Unknown]
  - Thyroid function test abnormal [Recovering/Resolving]
  - Pericardial effusion [Recovering/Resolving]
